FAERS Safety Report 17133368 (Version 19)
Quarter: 2022Q4

REPORT INFORMATION
  Report Type: Report from Study
  Country: JP (occurrence: JP)
  Receive Date: 20191210
  Receipt Date: 20221208
  Transmission Date: 20230112
  Serious: Yes (Hospitalization, Other)
  Sender: FDA-Public Use
  Company Number: JP-BRISTOL-MYERS SQUIBB COMPANY-BMS-2019-118263

PATIENT
  Age: 60 Year
  Sex: Female
  Weight: 52.5 kg

DRUGS (48)
  1. OPDIVO [Suspect]
     Active Substance: NIVOLUMAB
     Indication: Malignant melanoma
     Dosage: 240 MILLIGRAM, Q2WK
     Route: 041
     Dates: start: 20190618, end: 20190813
  2. DABRAFENIB MESYLATE [Suspect]
     Active Substance: DABRAFENIB MESYLATE
     Indication: Malignant melanoma
     Dosage: 300 MG, EVERYDAY
     Route: 065
     Dates: start: 20190820, end: 20190910
  3. DABRAFENIB MESYLATE [Suspect]
     Active Substance: DABRAFENIB MESYLATE
     Dosage: 200 MG, EVERYDAY
     Route: 065
     Dates: start: 20190917
  4. DABRAFENIB MESYLATE [Suspect]
     Active Substance: DABRAFENIB MESYLATE
     Dosage: UNK
     Route: 065
     Dates: end: 20191105
  5. DABRAFENIB MESYLATE [Suspect]
     Active Substance: DABRAFENIB MESYLATE
     Dosage: CUMULATIVE DOSE : 6600 MILLIGRAMS
     Route: 065
     Dates: start: 20191105
  6. TRAMETINIB DIMETHYL SULFOXIDE [Suspect]
     Active Substance: TRAMETINIB DIMETHYL SULFOXIDE
     Indication: Malignant melanoma
     Dosage: 2 MG, EVERYDAY
     Route: 065
     Dates: start: 20190820, end: 20190910
  7. TRAMETINIB DIMETHYL SULFOXIDE [Suspect]
     Active Substance: TRAMETINIB DIMETHYL SULFOXIDE
     Dosage: 1.5 MG, EVERYDAY
     Route: 065
     Dates: start: 20190917
  8. TRAMETINIB DIMETHYL SULFOXIDE [Suspect]
     Active Substance: TRAMETINIB DIMETHYL SULFOXIDE
     Dosage: UNK
     Route: 065
     Dates: end: 20191105
  9. TRAMETINIB DIMETHYL SULFOXIDE [Suspect]
     Active Substance: TRAMETINIB DIMETHYL SULFOXIDE
     Dosage: CUMULATIVE DOSE: 44 MG
     Route: 065
     Dates: start: 20191105
  10. PREDNISOLONE [Suspect]
     Active Substance: PREDNISOLONE
     Indication: Diarrhoea
     Dosage: 25 MG
     Route: 048
     Dates: start: 20190910, end: 20190916
  11. PREDNISOLONE [Suspect]
     Active Substance: PREDNISOLONE
     Indication: Pyrexia
     Dosage: 20 MG
     Route: 048
     Dates: start: 20190917, end: 20191216
  12. PREDNISOLONE [Suspect]
     Active Substance: PREDNISOLONE
     Indication: Rash
     Dosage: 15 MG
     Route: 048
     Dates: start: 20191217, end: 20200106
  13. PREDNISOLONE [Suspect]
     Active Substance: PREDNISOLONE
     Indication: Blood lactate dehydrogenase increased
     Dosage: 10 MG
     Route: 048
     Dates: start: 20200107, end: 20200119
  14. PREDNISOLONE [Suspect]
     Active Substance: PREDNISOLONE
     Indication: Diarrhoea
     Dosage: 7.5 MG
     Route: 048
     Dates: start: 20200120
  15. PREDNISOLONE [Suspect]
     Active Substance: PREDNISOLONE
     Dosage: 5.0 MG
     Route: 048
     Dates: start: 202001
  16. BRAFTOVI [Suspect]
     Active Substance: ENCORAFENIB
     Indication: Malignant melanoma
     Dosage: 450 MILLIGRAM, EVERYDAY
     Route: 048
     Dates: start: 20191127, end: 20191207
  17. BRAFTOVI [Suspect]
     Active Substance: ENCORAFENIB
     Dosage: 300 MILLIGRAM EVERYDAY
     Route: 048
     Dates: start: 20200107, end: 20200122
  18. BRAFTOVI [Suspect]
     Active Substance: ENCORAFENIB
     Dosage: 300 MILLIGRAM, EVERYDAY
     Route: 048
     Dates: start: 20200205, end: 20200330
  19. BRAFTOVI [Suspect]
     Active Substance: ENCORAFENIB
     Dosage: 450 MILLIGRAM, EVERYDAY
     Route: 048
     Dates: start: 20200331, end: 20200428
  20. BRAFTOVI [Suspect]
     Active Substance: ENCORAFENIB
     Dosage: 300 MILLIGRAM, EVERYDAY
     Route: 048
     Dates: start: 20200503, end: 20200507
  21. BRAFTOVI [Suspect]
     Active Substance: ENCORAFENIB
     Dosage: 300 MILLIGRAM, EVERYDAY
     Route: 048
     Dates: start: 20200511, end: 20201126
  22. MEKTOVI [Suspect]
     Active Substance: BINIMETINIB
     Indication: Malignant melanoma
     Dosage: 90 MILLIGRAM, EVERYDAY
     Route: 048
     Dates: start: 20191127, end: 20191207
  23. MEKTOVI [Suspect]
     Active Substance: BINIMETINIB
     Dosage: 30 MILLIGRAM, Q12H
     Route: 048
     Dates: start: 20200107, end: 20200122
  24. MEKTOVI [Suspect]
     Active Substance: BINIMETINIB
     Dosage: 30 MILLIGRAM, Q12H
     Route: 048
     Dates: start: 20200205, end: 20200330
  25. MEKTOVI [Suspect]
     Active Substance: BINIMETINIB
     Dosage: 45 MILLIGRAM, Q12H
     Route: 048
     Dates: start: 20200331, end: 20200502
  26. MEKTOVI [Suspect]
     Active Substance: BINIMETINIB
     Dosage: 30 MILLIGRAM, Q12H
     Route: 048
     Dates: start: 20200503, end: 20200507
  27. MEKTOVI [Suspect]
     Active Substance: BINIMETINIB
     Dosage: 30 MILLIGRAM, Q12H
     Route: 048
     Dates: start: 20200511, end: 20201126
  28. VOGLIBOSE [Suspect]
     Active Substance: VOGLIBOSE
     Indication: Steroid diabetes
     Dosage: UNK
     Route: 048
  29. ALFACALCIDOL [Concomitant]
     Active Substance: ALFACALCIDOL
     Indication: Osteoporosis prophylaxis
     Dosage: UNK
     Route: 048
  30. ALFACALCIDOL [Concomitant]
     Active Substance: ALFACALCIDOL
     Dosage: UNK
     Route: 048
  31. FAMOTIDINE [Concomitant]
     Active Substance: FAMOTIDINE
     Indication: Gastritis prophylaxis
     Dosage: UNK
     Route: 048
  32. FAMOTIDINE [Concomitant]
     Active Substance: FAMOTIDINE
     Dosage: UNK
     Route: 048
  33. JANUVIA [Concomitant]
     Active Substance: SITAGLIPTIN PHOSPHATE
     Indication: Steroid diabetes
     Dosage: UNK
     Route: 048
  34. JANUVIA [Concomitant]
     Active Substance: SITAGLIPTIN PHOSPHATE
     Dosage: UNK
     Route: 048
  35. JANUVIA [Concomitant]
     Active Substance: SITAGLIPTIN PHOSPHATE
     Dosage: UNK
     Route: 048
  36. JANUVIA [Concomitant]
     Active Substance: SITAGLIPTIN PHOSPHATE
     Dosage: UNK
     Route: 048
  37. EDOXABAN TOSYLATE [Concomitant]
     Active Substance: EDOXABAN TOSYLATE
     Indication: Prophylaxis
     Dosage: UNK
     Route: 048
  38. EDOXABAN TOSYLATE [Concomitant]
     Active Substance: EDOXABAN TOSYLATE
     Dosage: UNK
     Route: 048
  39. EDOXABAN TOSYLATE [Concomitant]
     Active Substance: EDOXABAN TOSYLATE
     Dosage: UNK
     Route: 048
  40. EDOXABAN TOSYLATE [Concomitant]
     Active Substance: EDOXABAN TOSYLATE
     Dosage: UNK
     Route: 048
  41. LEVOTHYROXINE SODIUM [Concomitant]
     Active Substance: LEVOTHYROXINE SODIUM
     Indication: Thyroiditis
     Dosage: UNK
     Route: 048
  42. LEVOTHYROXINE SODIUM [Concomitant]
     Active Substance: LEVOTHYROXINE SODIUM
     Dosage: UNK
     Route: 048
  43. LEVOTHYROXINE SODIUM [Concomitant]
     Active Substance: LEVOTHYROXINE SODIUM
     Dosage: UNK
     Route: 048
  44. LEVOTHYROXINE SODIUM [Concomitant]
     Active Substance: LEVOTHYROXINE SODIUM
     Dosage: UNK
     Route: 048
  45. SULFAMETHOXAZOLE\TRIMETHOPRIM [Concomitant]
     Active Substance: SULFAMETHOXAZOLE\TRIMETHOPRIM
     Indication: Infection prophylaxis
     Dosage: UNK
     Route: 048
  46. SULFAMETHOXAZOLE\TRIMETHOPRIM [Concomitant]
     Active Substance: SULFAMETHOXAZOLE\TRIMETHOPRIM
     Dosage: UNK
     Route: 048
  47. SULFAMETHOXAZOLE\TRIMETHOPRIM [Concomitant]
     Active Substance: SULFAMETHOXAZOLE\TRIMETHOPRIM
     Dosage: UNK
     Route: 048
  48. SULFAMETHOXAZOLE\TRIMETHOPRIM [Concomitant]
     Active Substance: SULFAMETHOXAZOLE\TRIMETHOPRIM
     Dosage: UNK
     Route: 048

REACTIONS (16)
  - Malignant neoplasm progression [Unknown]
  - Renal impairment [Recovered/Resolved]
  - Diarrhoea [Recovered/Resolved]
  - Pyrexia [Recovered/Resolved]
  - Rash [Recovered/Resolved]
  - Blood lactate dehydrogenase increased [Unknown]
  - Macular detachment [Recovering/Resolving]
  - Disseminated intravascular coagulation [Recovered/Resolved]
  - Flatulence [Recovered/Resolved]
  - Large intestine perforation [Unknown]
  - Rhabdomyolysis [Recovered/Resolved]
  - Uveitis [Unknown]
  - Leukoderma [Not Recovered/Not Resolved]
  - Thyroid disorder [Recovered/Resolved]
  - Hepatic function abnormal [Recovered/Resolved]
  - Anaemia [Recovered/Resolved]

NARRATIVE: CASE EVENT DATE: 20190730
